FAERS Safety Report 19029448 (Version 1)
Quarter: 2021Q1

REPORT INFORMATION
  Report Type: Report from Study
  Country: DE (occurrence: DE)
  Receive Date: 20210318
  Receipt Date: 20210318
  Transmission Date: 20210420
  Serious: Yes (Death)
  Sender: FDA-Public Use
  Company Number: DE-EXELIXIS-XL18420034470

PATIENT

DRUGS (5)
  1. XL184 [Suspect]
     Active Substance: CABOZANTINIB
     Indication: RENAL CELL CARCINOMA
     Dosage: 60 MG
     Dates: start: 20200826, end: 20201215
  2. DENOSUMAB [Concomitant]
     Active Substance: DENOSUMAB
     Dosage: UNK
  3. EFFENTORA [Concomitant]
     Active Substance: FENTANYL CITRATE
     Dosage: UNK
  4. NSAIDS [Concomitant]
     Active Substance: UNSPECIFIED INGREDIENT
     Dosage: UNK
  5. FERRO SANOL [Concomitant]
     Active Substance: FERROUS GLYCINE SULFATE
     Dosage: UNK

REACTIONS (2)
  - COVID-19 [Fatal]
  - Diarrhoea [Unknown]

NARRATIVE: CASE EVENT DATE: 202010
